FAERS Safety Report 8927596 (Version 1)
Quarter: 2012Q4

REPORT INFORMATION
  Report Type: Report from Study
  Country: US (occurrence: US)
  Receive Date: 20121127
  Receipt Date: 20121127
  Transmission Date: 20130627
  Serious: Yes (Life-Threatening, Hospitalization)
  Sender: FDA-Public Use
  Company Number: US-009507513-1211USA009285

PATIENT
  Age: 58 Year
  Sex: Female
  Weight: 50.9 kg

DRUGS (8)
  1. MK-7365 [Suspect]
     Indication: GLIOBLASTOMA
     Dosage: 3.3 mg, qd
     Dates: start: 20100504, end: 20100508
  2. MK-7365 [Suspect]
     Dosage: UNK
     Dates: start: 20100504
  3. BEVACIZUMAB [Suspect]
     Indication: GLIOBLASTOMA
     Dosage: UNK
     Route: 042
     Dates: start: 20100504
  4. BEVACIZUMAB [Suspect]
     Dosage: 509 mg, every 2 weeks
     Route: 042
     Dates: start: 20100222
  5. TOPOTECAN [Suspect]
     Indication: GLIOBLASTOMA
     Dosage: UNK
     Route: 048
     Dates: start: 20100505, end: 20100509
  6. TOPOTECAN [Suspect]
     Dosage: 2.25 mg, qd
     Route: 048
     Dates: start: 20100222
  7. HYDROCORTISONE [Concomitant]
  8. METHYLPREDNISOLONE [Concomitant]

REACTIONS (3)
  - Respiratory failure [Recovering/Resolving]
  - Pneumonia cytomegaloviral [Unknown]
  - Pancytopenia [Unknown]
